FAERS Safety Report 12537454 (Version 2)
Quarter: 2016Q3

REPORT INFORMATION
  Report Type: Report from Study
  Country: CA (occurrence: CA)
  Receive Date: 20160707
  Receipt Date: 20160823
  Transmission Date: 20161109
  Serious: Yes (Other)
  Sender: FDA-Public Use
  Company Number: CA-ABBVIE-16K-028-1665625-00

PATIENT
  Age: 46 Year
  Sex: Female

DRUGS (1)
  1. HUMIRA [Suspect]
     Active Substance: ADALIMUMAB
     Indication: CROHN^S DISEASE
     Route: 058
     Dates: start: 20081126

REACTIONS (8)
  - Gastrointestinal ulcer perforation [Recovered/Resolved]
  - Diarrhoea [Not Recovered/Not Resolved]
  - Intestinal perforation [Recovered/Resolved]
  - Proctitis [Not Recovered/Not Resolved]
  - Acute abdomen [Recovered/Resolved]
  - Intestinal stenosis [Recovered/Resolved]
  - Drug effect decreased [Not Recovered/Not Resolved]
  - Arthralgia [Not Recovered/Not Resolved]

NARRATIVE: CASE EVENT DATE: 201401
